FAERS Safety Report 4314209-9 (Version None)
Quarter: 2004Q1

REPORT INFORMATION
  Report Type: 
  Country: None (occurrence: None)
  Receive Date: 20040304
  Receipt Date: 20030221
  Transmission Date: 20041129
  Serious: Yes (Hospitalization)
  Sender: FDA-Public Use
  Company Number: 200055

PATIENT
  Age: 15 Year
  Sex: Male
  Weight: 44.2 kg

DRUGS (2)
  1. NUTROPIN AQ [Suspect]
     Indication: GROWTH RETARDATION
     Dosage: 2.4 MG, QD, SUBCUTANEOUS
     Route: 058
     Dates: start: 20020725, end: 20020916
  2. ADDERALL 5 [Concomitant]

REACTIONS (2)
  - HEADACHE [None]
  - INTRACRANIAL PRESSURE INCREASED [None]
